FAERS Safety Report 5174542-8 (Version None)
Quarter: 2006Q4

REPORT INFORMATION
  Report Type: 
  Country: None (occurrence: None)
  Receive Date: 20061214
  Receipt Date: 20060607
  Transmission Date: 20070319
  Serious: No
  Sender: FDA-Public Use
  Company Number: US-AMGEN-KDL182283

PATIENT
  Sex: Male
  Weight: 95.8 kg

DRUGS (1)
  1. ENBREL [Suspect]
     Indication: PSORIASIS
     Route: 058
     Dates: start: 20040719

REACTIONS (4)
  - ABSCESS LIMB [None]
  - CARBUNCLE [None]
  - CONDITION AGGRAVATED [None]
  - PLATELET COUNT INCREASED [None]
